FAERS Safety Report 5460854-7 (Version None)
Quarter: 2007Q3

REPORT INFORMATION
  Report Type: 
  Country: None (occurrence: None)
  Receive Date: 20070919
  Receipt Date: 20070911
  Transmission Date: 20080115
  Serious: No
  Sender: FDA-Public Use
  Company Number: US-BOEHRINGER INGELHEIM PHARMACEUTICALS, INC.-2007-BP-20885BP

PATIENT
  Sex: Male

DRUGS (4)
  1. SPIRIVA [Suspect]
     Indication: MULTIPLE ALLERGIES
     Route: 055
     Dates: start: 20050101
  2. SPIRIVA [Suspect]
     Indication: ASTHMA
  3. SINGULAIR [Concomitant]
     Indication: ASTHMA
  4. NASACORT [Concomitant]
     Indication: ASTHMA

REACTIONS (2)
  - CHEST DISCOMFORT [None]
  - MALAISE [None]
